FAERS Safety Report 7687687-5 (Version None)
Quarter: 2011Q3

REPORT INFORMATION
  Report Type: 
  Country: None (occurrence: None)
  Receive Date: 20110817
  Receipt Date: 20110808
  Transmission Date: 20111222
  Serious: Yes (Other)
  Sender: FDA-Public Use
  Company Number: PHHY2011FR71322

PATIENT
  Sex: Female
  Weight: 3.325 kg

DRUGS (1)
  1. SYNTOCINON [Suspect]
     Dosage: 25 IU, UNK
     Route: 042
     Dates: start: 20090109

REACTIONS (4)
  - MATERNAL EXPOSURE DURING PREGNANCY [None]
  - THROMBOSIS [None]
  - UTERINE ATONY [None]
  - DRUG INEFFECTIVE [None]
